FAERS Safety Report 10398144 (Version 1)
Quarter: 2014Q3

REPORT INFORMATION
  Report Type: Spontaneous
  Country: CN (occurrence: None)
  Receive Date: 20140818
  Receipt Date: 20140818
  Transmission Date: 20150326
  Serious: Yes (Death, Hospitalization)
  Sender: FDA-Public Use
  Company Number: 2014JUB00084

PATIENT
  Age: 74 Year
  Sex: Female

DRUGS (6)
  1. BUDESONIDE ( BUDESONIDE) [Suspect]
     Active Substance: BUDESONIDE
     Indication: CHRONIC OBSTRUCTIVE PULMONARY DISEASE
     Dosage: RESPIRATORY
  2. METHYLPREDNISOLONE ( METHYLPREDNISOLONE) UNKNOWN [Suspect]
     Active Substance: METHYLPREDNISOLONE
     Indication: CHRONIC OBSTRUCTIVE PULMONARY DISEASE
     Dosage: 1X/DAY
     Route: 042
  3. LEVOFLOXACIN ( LEVOFLOXACIN) [Concomitant]
     Active Substance: LEVOFLOXACIN
  4. CEFMINOX ( CEFMINOX) [Concomitant]
  5. METHYLPREDNISOLONE ( METHYLPREDNISOLONE) UNKNOWN [Suspect]
     Active Substance: METHYLPREDNISOLONE
     Indication: DYSPNOEA
     Dosage: 1X/DAY
     Route: 042
  6. BUDESONIDE ( BUDESONIDE) [Suspect]
     Active Substance: BUDESONIDE
     Indication: DYSPNOEA
     Dosage: RESPIRATORY

REACTIONS (5)
  - Bronchopulmonary aspergillosis [None]
  - Septic shock [None]
  - Emphysema [None]
  - Renal failure [None]
  - Gastrointestinal haemorrhage [None]

NARRATIVE: CASE EVENT DATE: 2010
